FAERS Safety Report 7285439-1 (Version None)
Quarter: 2011Q1

REPORT INFORMATION
  Report Type: 
  Country: None (occurrence: None)
  Receive Date: 20110210
  Receipt Date: 20101206
  Transmission Date: 20110831
  Serious: Yes (Other)
  Sender: FDA-Public Use
  Company Number: US-BAYER-201035359NA

PATIENT
  Sex: Female
  Weight: 82.993 kg

DRUGS (1)
  1. MIRENA [Suspect]
     Indication: CONTRACEPTION
     Dosage: CONTINUOUS
     Route: 015
     Dates: start: 20090327, end: 20090327

REACTIONS (3)
  - UTERINE PERFORATION [None]
  - NAUSEA [None]
  - PAIN [None]
